FAERS Safety Report 8641036 (Version 2)
Quarter: 2012Q4

REPORT INFORMATION
  Report Type: 
  Country: FR (occurrence: FR)
  Receive Date: 20120628
  Receipt Date: 20120904
  Transmission Date: 20130627
  Serious: Yes (Other)
  Sender: FDA-Public Use
  Company Number: FR-JNJFOC-20120611668

PATIENT
  Age: 54 Year
  Sex: Male

DRUGS (8)
  1. DUROGESIC [Suspect]
     Indication: PAIN
     Route: 062
     Dates: start: 20120301, end: 20120424
  2. AMISULPRIDE [Suspect]
     Indication: DEPRESSION
     Route: 048
     Dates: start: 20120322, end: 20120427
  3. AGOMELATINE [Suspect]
     Indication: DEPRESSION
     Route: 048
     Dates: start: 20120322, end: 20120427
  4. OXAZEPAM [Suspect]
     Indication: INSOMNIA
     Route: 048
     Dates: start: 20120301, end: 20120427
  5. TEMESTA [Suspect]
     Indication: DEPRESSION
     Route: 048
     Dates: start: 20120322, end: 20120427
  6. TEMESTA [Suspect]
     Indication: INSOMNIA
     Route: 048
     Dates: start: 20120322, end: 20120427
  7. NOCTAMIDE [Concomitant]
     Indication: DEPRESSION
     Route: 048
     Dates: start: 20120322
  8. NOCTAMIDE [Concomitant]
     Indication: INSOMNIA
     Route: 048
     Dates: start: 20120322

REACTIONS (1)
  - Myoclonus [Recovering/Resolving]
